FAERS Safety Report 15261205 (Version 1)
Quarter: 2018Q3

REPORT INFORMATION
  Report Type: Spontaneous
  Country: US (occurrence: US)
  Receive Date: 20180809
  Receipt Date: 20180809
  Transmission Date: 20181010
  Serious: No
  Sender: FDA-Public Use
  Company Number: US-ASTRAZENECA-2018SE93737

PATIENT
  Age: 25 Year
  Sex: Male

DRUGS (3)
  1. BRILIQUE [Suspect]
     Active Substance: TICAGRELOR
     Indication: STENT PLACEMENT
     Route: 048
  2. ASPIRIN. [Concomitant]
     Active Substance: ASPIRIN
     Dosage: 100.0MG UNKNOWN
     Route: 065
  3. DILTIAZEM. [Concomitant]
     Active Substance: DILTIAZEM

REACTIONS (4)
  - Arterial spasm [Unknown]
  - Haemorrhagic diathesis [Unknown]
  - Increased tendency to bruise [Unknown]
  - Chest pain [Unknown]
